FAERS Safety Report 6330877-4 (Version None)
Quarter: 2009Q3

REPORT INFORMATION
  Report Type: 
  Country: None (occurrence: None)
  Receive Date: 20090827
  Receipt Date: 20090819
  Transmission Date: 20100115
  Serious: Yes (Hospitalization)
  Sender: FDA-Public Use
  Company Number: NL-JNJFOC-20090806432

PATIENT
  Sex: Female
  Weight: 60 kg

DRUGS (3)
  1. REMICADE [Suspect]
     Indication: ANKYLOSING SPONDYLITIS
     Route: 042
  2. CYCLACUR [Concomitant]
     Indication: TURNER'S SYNDROME
  3. MOVICOX [Concomitant]
     Indication: ANKYLOSING SPONDYLITIS

REACTIONS (1)
  - MALIGNANT MELANOMA [None]
